FAERS Safety Report 4320175-2 (Version None)
Quarter: 2004Q1

REPORT INFORMATION
  Report Type: 
  Country: None (occurrence: None)
  Receive Date: 20040317
  Receipt Date: 20040304
  Transmission Date: 20041129
  Serious: Yes (Hospitalization)
  Sender: FDA-Public Use
  Company Number: 2003113915

PATIENT
  Age: 25 Year
  Sex: Male
  Weight: 71 kg

DRUGS (1)
  1. ZOLOFT [Suspect]
     Indication: DEPRESSION
     Dosage: 100 MG, DAILY, ORAL
     Route: 048
     Dates: start: 20030801, end: 20031010

REACTIONS (7)
  - ABNORMAL BEHAVIOUR [None]
  - AGITATION [None]
  - HOSTILITY [None]
  - INSOMNIA [None]
  - MANIA [None]
  - PSYCHOTIC DISORDER [None]
  - THINKING ABNORMAL [None]
